FAERS Safety Report 11066558 (Version 1)
Quarter: 2015Q2

REPORT INFORMATION
  Report Type: Spontaneous
  Country: US (occurrence: None)
  Receive Date: 20150416
  Receipt Date: 20150416
  Transmission Date: 20150821
  Serious: Yes (Other)
  Sender: FDA-Public Use
  Company Number: 2012P1060787

PATIENT
  Age: 70 Year
  Sex: Female
  Weight: 63.5 kg

DRUGS (4)
  1. PARNATE [Suspect]
     Active Substance: TRANYLCYPROMINE SULFATE
     Indication: DEPRESSION
     Dates: start: 1987, end: 2002
  2. NORVASC [Suspect]
     Active Substance: AMLODIPINE BESYLATE
     Indication: BLOOD PRESSURE INCREASED
     Route: 048
     Dates: start: 20120709, end: 201207
  3. COREG CR [Suspect]
     Active Substance: CARVEDILOL PHOSPHATE
     Indication: BLOOD PRESSURE INCREASED
     Route: 048
     Dates: start: 2012
  4. LITHIUM. [Concomitant]
     Active Substance: LITHIUM

REACTIONS (11)
  - Hypertension [None]
  - Tremor [None]
  - Joint swelling [None]
  - Vomiting [None]
  - Heart rate increased [None]
  - Nausea [None]
  - Fatigue [None]
  - Asthenia [None]
  - Malaise [None]
  - Labelled drug-food interaction medication error [None]
  - Nervousness [None]

NARRATIVE: CASE EVENT DATE: 20120704
